FAERS Safety Report 4977870-1 (Version None)
Quarter: 2006Q2

REPORT INFORMATION
  Report Type: 
  Country: None (occurrence: None)
  Receive Date: 20060420
  Receipt Date: 20060412
  Transmission Date: 20061013
  Serious: Yes (Other)
  Sender: FDA-Public Use
  Company Number: GB-GLAXOSMITHKLINE-B0420790A

PATIENT
  Sex: Male

DRUGS (3)
  1. SEROXAT [Suspect]
  2. DOTHIEPIN HYDROCHLORIDE [Suspect]
     Route: 065
  3. ZOPICLONE [Concomitant]
     Route: 065

REACTIONS (6)
  - ANXIETY [None]
  - COMPLETED SUICIDE [None]
  - DIZZINESS [None]
  - DRUG WITHDRAWAL SYNDROME [None]
  - MALAISE [None]
  - STRESS [None]
